FAERS Safety Report 8140788-X (Version None)
Quarter: 2012Q1

REPORT INFORMATION
  Report Type: 
  Country: None (occurrence: None)
  Receive Date: 20120216
  Receipt Date: 20120214
  Transmission Date: 20120608
  Serious: Yes (Hospitalization)
  Sender: FDA-Public Use
  Company Number: NL-PFIZER INC-2012040250

PATIENT
  Age: 56 Year
  Sex: Female

DRUGS (3)
  1. VARENICLINE TARTRATE [Suspect]
     Indication: SMOKING CESSATION THERAPY
     Dosage: UNK
     Dates: start: 20111223, end: 20120207
  2. ATACAND HCT [Concomitant]
     Dosage: 1 DF, 1X/DAY
     Dates: start: 20110610
  3. TEMAZEPAM [Concomitant]
     Dosage: 1 DF, 1X/DAY
     Dates: start: 20111110

REACTIONS (1)
  - SUTURE RELATED COMPLICATION [None]
